FAERS Safety Report 5350797-1 (Version None)
Quarter: 2007Q2

REPORT INFORMATION
  Report Type: 
  Country: None (occurrence: None)
  Receive Date: 20070608
  Receipt Date: 20070531
  Transmission Date: 20071010
  Serious: No
  Sender: FDA-Public Use
  Company Number: US-ASTRAZENECA-2006UW07712

PATIENT
  Age: 472 Month
  Sex: Female
  Weight: 90.9 kg

DRUGS (9)
  1. SEROQUEL [Suspect]
     Indication: BIPOLAR DISORDER
     Route: 048
     Dates: start: 20030901
  2. SEROQUEL [Suspect]
     Indication: DEPRESSION
     Route: 048
     Dates: start: 20030901
  3. SEROQUEL [Suspect]
     Indication: POST-TRAUMATIC STRESS DISORDER
     Route: 048
     Dates: start: 20030901
  4. SEROQUEL [Suspect]
     Route: 048
     Dates: start: 20031001
  5. SEROQUEL [Suspect]
     Route: 048
     Dates: start: 20031001
  6. SEROQUEL [Suspect]
     Route: 048
     Dates: start: 20031001
  7. ABILIFY [Concomitant]
  8. TRAZODONE HCL [Concomitant]
  9. LIPITOR [Concomitant]

REACTIONS (1)
  - DIABETES MELLITUS [None]
